FAERS Safety Report 5706891-6 (Version None)
Quarter: 2008Q2

REPORT INFORMATION
  Report Type: 
  Country: None (occurrence: None)
  Receive Date: 20080416
  Receipt Date: 20080404
  Transmission Date: 20081010
  Serious: Yes (Other)
  Sender: FDA-Public Use
  Company Number: US-ROCHE-544714

PATIENT
  Sex: Male
  Weight: 68 kg

DRUGS (2)
  1. ACCUTANE [Suspect]
     Dosage: THE PATIENT WAS DISPENSED ACCUTANE 40 MG CAPSULE ON 4/3/01, 5/4/01, 6/6/01, 7/5/01 AND 8/7/01
     Route: 065
     Dates: start: 20010403, end: 20010907
  2. BACTROBAN [Concomitant]
     Indication: DRUG USE FOR UNKNOWN INDICATION
     Dosage: THE PATIENT WAS TAKING BACTROBAN IN OCEAN MIST, THREE TIMES A DAY INTO NOSTRILS
     Route: 050
     Dates: start: 20010404, end: 20010901

REACTIONS (9)
  - ARTHRALGIA [None]
  - COLITIS [None]
  - COLITIS ULCERATIVE [None]
  - EMOTIONAL DISTRESS [None]
  - GASTROOESOPHAGEAL REFLUX DISEASE [None]
  - INFLAMMATORY BOWEL DISEASE [None]
  - INGROWING NAIL [None]
  - MYALGIA [None]
  - RASH [None]
